FAERS Safety Report 25818884 (Version 1)
Quarter: 2025Q3

REPORT INFORMATION
  Report Type: Report from Study
  Country: US (occurrence: US)
  Receive Date: 20250918
  Receipt Date: 20250918
  Transmission Date: 20251021
  Serious: Yes (Other)
  Sender: ALEXION PHARMACEUTICALS
  Company Number: 202508USA025937US

PATIENT
  Sex: Male

DRUGS (1)
  1. OLAPARIB [Suspect]
     Active Substance: OLAPARIB
     Indication: Prostate cancer
     Dosage: 150 MILLIGRAM, BID
     Dates: start: 20250527, end: 20250822

REACTIONS (4)
  - Underdose [Unknown]
  - Renal impairment [Unknown]
  - Full blood count decreased [Unknown]
  - Product dose omission issue [Unknown]
